FAERS Safety Report 13958284 (Version 1)
Quarter: 2017Q3

REPORT INFORMATION
  Report Type: Spontaneous
  Country: US (occurrence: US)
  Receive Date: 20170911
  Receipt Date: 20170911
  Transmission Date: 20171128
  Serious: No
  Sender: FDA-Public Use
  Company Number: US-ROCHE-1961625

PATIENT
  Age: 88 Year
  Sex: Male

DRUGS (3)
  1. TECENTRIQ [Suspect]
     Active Substance: ATEZOLIZUMAB
     Indication: BLADDER CANCER
     Route: 065
     Dates: start: 20170706
  2. CURCUMIN [Concomitant]
     Active Substance: CURCUMIN
     Dosage: YES
     Route: 065
  3. NATTO [Concomitant]
     Dosage: YES
     Route: 065

REACTIONS (4)
  - Retching [Recovered/Resolved]
  - Loss of consciousness [Unknown]
  - Erythema [Unknown]
  - Body temperature increased [Unknown]

NARRATIVE: CASE EVENT DATE: 20170706
